FAERS Safety Report 13781356 (Version 1)
Quarter: 2017Q3

REPORT INFORMATION
  Report Type: Spontaneous
  Country: US (occurrence: US)
  Receive Date: 20170724
  Receipt Date: 20170724
  Transmission Date: 20171127
  Serious: No
  Sender: FDA-Public Use
  Company Number: US-AUROBINDO-AUR-APU-2015-06227

PATIENT

DRUGS (6)
  1. ALPRAZOLAM EXTENDED-RELEASE TABLETS 1MG [Suspect]
     Active Substance: ALPRAZOLAM
     Dosage: 1 MG, TWO TIMES A DAY
     Route: 065
     Dates: start: 20140412
  2. ALPRAZOLAM EXTENDED-RELEASE TABLETS 1MG [Suspect]
     Active Substance: ALPRAZOLAM
     Dosage: 1 MG, TWO TIMES A DAY
     Route: 065
     Dates: start: 20140409
  3. ALPRAZOLAM EXTENDED-RELEASE TABLETS 1MG [Suspect]
     Active Substance: ALPRAZOLAM
     Indication: PRODUCT USED FOR UNKNOWN INDICATION
     Dosage: 1 MG, 5 TIMES A DAY
     Route: 065
     Dates: start: 20140407
  4. ALPRAZOLAM EXTENDED-RELEASE TABLETS 1MG [Suspect]
     Active Substance: ALPRAZOLAM
     Dosage: 1 MG, TWO TIMES A DAY
     Route: 065
     Dates: start: 20140408
  5. ALPRAZOLAM EXTENDED-RELEASE TABLETS 1MG [Suspect]
     Active Substance: ALPRAZOLAM
     Dosage: 1 MG, TWO TIMES A DAY
     Route: 065
     Dates: start: 20140409
  6. ALPRAZOLAM EXTENDED-RELEASE TABLETS 1MG [Suspect]
     Active Substance: ALPRAZOLAM
     Dosage: 1 MG, TWO TIMES A DAY
     Route: 065
     Dates: start: 20140411

REACTIONS (3)
  - Insomnia [Unknown]
  - Anxiety [Unknown]
  - Drug ineffective [Unknown]
